FAERS Safety Report 7401156-9 (Version None)
Quarter: 2011Q1

REPORT INFORMATION
  Report Type: 
  Country: None (occurrence: None)
  Receive Date: 20110329
  Receipt Date: 20110315
  Transmission Date: 20110831
  Serious: Yes (Other)
  Sender: FDA-Public Use
  Company Number: FK201100512

PATIENT
  Age: 7 Year
  Sex: Female

DRUGS (3)
  1. CISPLATIN [Suspect]
     Indication: GERM CELL CANCER
  2. ETOPOSIDE [Suspect]
     Indication: GERM CELL CANCER
  3. BLEOMYCIN (MANUFACTURER UNKNOWN) (BLEOMYCIN) [Suspect]
     Indication: GERM CELL CANCER

REACTIONS (3)
  - BLOOD PRESSURE INCREASED [None]
  - BRAIN OEDEMA [None]
  - POSTERIOR REVERSIBLE ENCEPHALOPATHY SYNDROME [None]
